FAERS Safety Report 17683688 (Version 2)
Quarter: 2020Q2

REPORT INFORMATION
  Report Type: Spontaneous
  Country: US (occurrence: US)
  Receive Date: 20200420
  Receipt Date: 20200518
  Transmission Date: 20200714
  Serious: Yes (Hospitalization)
  Sender: FDA-Public Use
  Company Number: US-LEXICON PHARMACEUTICALS, INC-20-1606-00286

PATIENT
  Age: 86 Year
  Sex: Female

DRUGS (7)
  1. XERMELO [Suspect]
     Active Substance: TELOTRISTAT ETHYL
     Indication: BRONCHIAL CARCINOMA
     Dates: start: 20180205
  2. LIPITOR [Concomitant]
     Active Substance: ATORVASTATIN CALCIUM
  3. XARELTO [Concomitant]
     Active Substance: RIVAROXABAN
  4. PLAVIX [Concomitant]
     Active Substance: CLOPIDOGREL BISULFATE
  5. SOMATULINE [Concomitant]
     Active Substance: LANREOTIDE ACETATE
  6. POTASSIUM [Concomitant]
     Active Substance: POTASSIUM
  7. AMIODARONE [Concomitant]
     Active Substance: AMIODARONE

REACTIONS (3)
  - Hospitalisation [Unknown]
  - Product dose omission [Unknown]
  - Wrong technique in product usage process [Unknown]

NARRATIVE: CASE EVENT DATE: 202003
